FAERS Safety Report 17745638 (Version 12)
Quarter: 2025Q1

REPORT INFORMATION
  Report Type: Spontaneous
  Country: CA (occurrence: CA)
  Receive Date: 20200505
  Receipt Date: 20250217
  Transmission Date: 20250408
  Serious: Yes (Hospitalization, Other)
  Sender: BAUSCH AND LOMB
  Company Number: CA-BAUSCH-BL-2020-012594

PATIENT
  Age: 52 Year
  Sex: Female

DRUGS (208)
  1. BUDESONIDE [Suspect]
     Active Substance: BUDESONIDE
     Indication: Product used for unknown indication
     Route: 065
  2. DIAZEPAM [Suspect]
     Active Substance: DIAZEPAM
     Indication: Depression
     Route: 065
  3. DIAZEPAM [Suspect]
     Active Substance: DIAZEPAM
     Route: 065
  4. DIAZEPAM [Suspect]
     Active Substance: DIAZEPAM
     Route: 065
  5. DIAZEPAM [Suspect]
     Active Substance: DIAZEPAM
     Route: 065
  6. DIAZEPAM [Suspect]
     Active Substance: DIAZEPAM
     Route: 065
  7. DIAZEPAM [Suspect]
     Active Substance: DIAZEPAM
     Route: 048
  8. DIAZEPAM [Suspect]
     Active Substance: DIAZEPAM
     Route: 065
  9. DIAZEPAM [Suspect]
     Active Substance: DIAZEPAM
     Dosage: 2 ADMINISTRATIONS
     Route: 048
  10. DIAZEPAM [Suspect]
     Active Substance: DIAZEPAM
     Route: 048
  11. DIAZEPAM [Suspect]
     Active Substance: DIAZEPAM
     Route: 048
  12. DIAZEPAM [Suspect]
     Active Substance: DIAZEPAM
     Route: 048
  13. ALBUTEROL [Suspect]
     Active Substance: ALBUTEROL
     Indication: Product used for unknown indication
     Route: 065
  14. ALBUTEROL [Suspect]
     Active Substance: ALBUTEROL
     Route: 065
  15. ALBUTEROL [Suspect]
     Active Substance: ALBUTEROL
     Route: 065
  16. ALBUTEROL [Suspect]
     Active Substance: ALBUTEROL
     Route: 065
  17. ACETAMINOPHEN [Suspect]
     Active Substance: ACETAMINOPHEN
     Indication: Pain in extremity
     Route: 048
  18. ACETAMINOPHEN [Suspect]
     Active Substance: ACETAMINOPHEN
     Route: 065
  19. ACETAMINOPHEN [Suspect]
     Active Substance: ACETAMINOPHEN
     Route: 048
  20. ACETAMINOPHEN [Suspect]
     Active Substance: ACETAMINOPHEN
     Route: 048
  21. ACETAMINOPHEN [Suspect]
     Active Substance: ACETAMINOPHEN
     Route: 048
  22. ACETAMINOPHEN [Suspect]
     Active Substance: ACETAMINOPHEN
     Route: 065
  23. ACETAMINOPHEN [Suspect]
     Active Substance: ACETAMINOPHEN
     Route: 065
  24. ACETAMINOPHEN [Suspect]
     Active Substance: ACETAMINOPHEN
     Route: 048
  25. ACETAMINOPHEN [Suspect]
     Active Substance: ACETAMINOPHEN
     Route: 048
  26. APTIVUS [Suspect]
     Active Substance: TIPRANAVIR
     Indication: HIV infection
     Route: 048
  27. APTIVUS [Suspect]
     Active Substance: TIPRANAVIR
     Route: 048
  28. APTIVUS [Suspect]
     Active Substance: TIPRANAVIR
     Route: 065
  29. CLONAZEPAM [Suspect]
     Active Substance: CLONAZEPAM
     Indication: Hypomania
     Route: 048
  30. CLONAZEPAM [Suspect]
     Active Substance: CLONAZEPAM
     Route: 048
  31. CLONAZEPAM [Suspect]
     Active Substance: CLONAZEPAM
     Route: 065
  32. CLONAZEPAM [Suspect]
     Active Substance: CLONAZEPAM
     Route: 065
  33. CLONAZEPAM [Suspect]
     Active Substance: CLONAZEPAM
     Route: 065
  34. OLANZAPINE [Suspect]
     Active Substance: OLANZAPINE
     Indication: Psychotic disorder
     Route: 065
  35. OLANZAPINE [Suspect]
     Active Substance: OLANZAPINE
     Indication: Musculoskeletal stiffness
     Route: 065
  36. OLANZAPINE [Suspect]
     Active Substance: OLANZAPINE
     Route: 065
  37. OLANZAPINE [Suspect]
     Active Substance: OLANZAPINE
     Route: 065
  38. OLANZAPINE [Suspect]
     Active Substance: OLANZAPINE
     Route: 048
  39. OLANZAPINE [Suspect]
     Active Substance: OLANZAPINE
     Dosage: DOSAGE FORM: NOT SPECIFIED
     Route: 065
  40. OLANZAPINE [Suspect]
     Active Substance: OLANZAPINE
     Dosage: DOSAGE FORM: NOT SPECIFIED
     Route: 065
  41. OLANZAPINE [Suspect]
     Active Substance: OLANZAPINE
     Route: 065
  42. PROCYCLIDINE HYDROCHLORIDE [Suspect]
     Active Substance: PROCYCLIDINE HYDROCHLORIDE
     Indication: Prophylaxis
     Route: 048
  43. PROCYCLIDINE HYDROCHLORIDE [Suspect]
     Active Substance: PROCYCLIDINE HYDROCHLORIDE
     Indication: Musculoskeletal stiffness
     Dosage: PROCYCLIDINE HYDROCHLORIDE
     Route: 048
  44. PROCYCLIDINE HYDROCHLORIDE [Suspect]
     Active Substance: PROCYCLIDINE HYDROCHLORIDE
     Dosage: PROCYCLIDINE HYDROCHLORIDE
     Route: 048
  45. PROCYCLIDINE HYDROCHLORIDE [Suspect]
     Active Substance: PROCYCLIDINE HYDROCHLORIDE
     Route: 065
  46. PROCYCLIDINE HYDROCHLORIDE [Suspect]
     Active Substance: PROCYCLIDINE HYDROCHLORIDE
     Dosage: DOSAGE FORM: NOT SPECIFIED, 2 ADMINISTRATIONS
     Route: 048
  47. QUETIAPINE FUMARATE [Suspect]
     Active Substance: QUETIAPINE FUMARATE
     Indication: Psychotic disorder
     Route: 048
  48. QUETIAPINE FUMARATE [Suspect]
     Active Substance: QUETIAPINE FUMARATE
     Route: 048
  49. QUETIAPINE FUMARATE [Suspect]
     Active Substance: QUETIAPINE FUMARATE
     Route: 048
  50. QUETIAPINE FUMARATE [Suspect]
     Active Substance: QUETIAPINE FUMARATE
     Route: 065
  51. QUETIAPINE FUMARATE [Suspect]
     Active Substance: QUETIAPINE FUMARATE
     Dosage: QUETIAPINE, 3 ADMINISTRATIONS
     Route: 048
  52. RISPERIDONE [Suspect]
     Active Substance: RISPERIDONE
     Indication: Psychotic disorder
     Route: 048
  53. RISPERIDONE [Suspect]
     Active Substance: RISPERIDONE
     Route: 048
  54. RISPERIDONE [Suspect]
     Active Substance: RISPERIDONE
     Dosage: DOSAGE FORM: NOT SPECIFIED
     Route: 048
  55. TEGRETOL [Suspect]
     Active Substance: CARBAMAZEPINE
     Indication: Hypomania
     Route: 065
  56. TEGRETOL [Suspect]
     Active Substance: CARBAMAZEPINE
     Route: 048
  57. TEGRETOL [Suspect]
     Active Substance: CARBAMAZEPINE
     Route: 048
  58. TEGRETOL [Suspect]
     Active Substance: CARBAMAZEPINE
     Route: 048
  59. TEGRETOL [Suspect]
     Active Substance: CARBAMAZEPINE
     Route: 065
  60. TEGRETOL [Suspect]
     Active Substance: CARBAMAZEPINE
     Dosage: DOSAGE FORM: NOT SPECIFIED
     Route: 048
  61. TEGRETOL [Suspect]
     Active Substance: CARBAMAZEPINE
     Dosage: DOSAGE FORM: NOT SPECIFIED
     Route: 065
  62. TRAZODONE [Suspect]
     Active Substance: TRAZODONE HYDROCHLORIDE
     Indication: Depression
     Route: 048
  63. TRAZODONE [Suspect]
     Active Substance: TRAZODONE HYDROCHLORIDE
     Indication: Hypomania
     Dosage: 3 ADMINISTRATIONS
     Route: 048
  64. TRAZODONE [Suspect]
     Active Substance: TRAZODONE HYDROCHLORIDE
     Route: 065
  65. TRAZODONE [Suspect]
     Active Substance: TRAZODONE HYDROCHLORIDE
     Route: 065
  66. TRAZODONE [Suspect]
     Active Substance: TRAZODONE HYDROCHLORIDE
     Route: 048
  67. TRAZODONE [Suspect]
     Active Substance: TRAZODONE HYDROCHLORIDE
     Route: 065
  68. TRAZODONE [Suspect]
     Active Substance: TRAZODONE HYDROCHLORIDE
     Route: 048
  69. TRAZODONE [Suspect]
     Active Substance: TRAZODONE HYDROCHLORIDE
     Route: 048
  70. TRAZODONE [Suspect]
     Active Substance: TRAZODONE HYDROCHLORIDE
     Route: 048
  71. TRAZODONE [Suspect]
     Active Substance: TRAZODONE HYDROCHLORIDE
     Dosage: 3 ADMINISTRATIONS
     Route: 065
  72. ZYPREXA [Suspect]
     Active Substance: OLANZAPINE
     Indication: Psychotic disorder
     Route: 048
  73. ZYPREXA [Suspect]
     Active Substance: OLANZAPINE
     Indication: Musculoskeletal stiffness
     Route: 048
  74. ZYPREXA [Suspect]
     Active Substance: OLANZAPINE
     Route: 048
  75. ZYPREXA [Suspect]
     Active Substance: OLANZAPINE
     Route: 048
  76. DIVALPROEX SODIUM [Suspect]
     Active Substance: DIVALPROEX SODIUM
     Indication: Product used for unknown indication
     Route: 048
  77. DIVALPROEX SODIUM [Suspect]
     Active Substance: DIVALPROEX SODIUM
     Route: 065
  78. DIVALPROEX SODIUM [Suspect]
     Active Substance: DIVALPROEX SODIUM
     Route: 065
  79. DIVALPROEX SODIUM [Suspect]
     Active Substance: DIVALPROEX SODIUM
     Route: 065
  80. DIVALPROEX SODIUM [Suspect]
     Active Substance: DIVALPROEX SODIUM
     Route: 065
  81. DIVALPROEX SODIUM [Suspect]
     Active Substance: DIVALPROEX SODIUM
     Route: 065
  82. DIVALPROEX SODIUM [Suspect]
     Active Substance: DIVALPROEX SODIUM
     Route: 065
  83. DIVALPROEX SODIUM [Suspect]
     Active Substance: DIVALPROEX SODIUM
     Route: 065
  84. DIVALPROEX SODIUM [Suspect]
     Active Substance: DIVALPROEX SODIUM
     Route: 065
  85. DIVALPROEX SODIUM [Suspect]
     Active Substance: DIVALPROEX SODIUM
     Route: 065
  86. DIVALPROEX SODIUM [Suspect]
     Active Substance: DIVALPROEX SODIUM
     Route: 048
  87. DIVALPROEX SODIUM [Suspect]
     Active Substance: DIVALPROEX SODIUM
     Route: 048
  88. DIVALPROEX SODIUM [Suspect]
     Active Substance: DIVALPROEX SODIUM
     Route: 065
  89. DIVALPROEX SODIUM [Suspect]
     Active Substance: DIVALPROEX SODIUM
     Dosage: DOSAGE FORM: NOT SPECIFIED
     Route: 065
  90. DIVALPROEX SODIUM [Suspect]
     Active Substance: DIVALPROEX SODIUM
     Dosage: DOSAGE FORM: NOT SPECIFIED
     Route: 048
  91. ACETAMINOPHEN\DIPHENHYDRAMINE HYDROCHLORIDE [Suspect]
     Active Substance: ACETAMINOPHEN\DIPHENHYDRAMINE HYDROCHLORIDE
     Indication: Product used for unknown indication
     Route: 065
  92. TIPRANAVIR [Suspect]
     Active Substance: TIPRANAVIR
     Indication: Product used for unknown indication
     Route: 048
  93. TIPRANAVIR [Suspect]
     Active Substance: TIPRANAVIR
     Dosage: DOSAGE FORM: NOT SPECIFIED
     Route: 048
  94. ATROVENT [Suspect]
     Active Substance: IPRATROPIUM BROMIDE
     Indication: Product used for unknown indication
     Route: 065
  95. ATROVENT [Suspect]
     Active Substance: IPRATROPIUM BROMIDE
     Route: 065
  96. ACLIDINIUM BROMIDE\FORMOTEROL FUMARATE [Suspect]
     Active Substance: ACLIDINIUM BROMIDE\FORMOTEROL FUMARATE
     Indication: Product used for unknown indication
     Route: 065
  97. ACLIDINIUM BROMIDE [Suspect]
     Active Substance: ACLIDINIUM BROMIDE
     Indication: Chronic obstructive pulmonary disease
     Route: 065
  98. AZITHROMYCIN [Suspect]
     Active Substance: AZITHROMYCIN
     Indication: Product used for unknown indication
     Route: 065
  99. AZITHROMYCIN [Suspect]
     Active Substance: AZITHROMYCIN
     Route: 065
  100. BREO ELLIPTA [Suspect]
     Active Substance: FLUTICASONE FUROATE\VILANTEROL TRIFENATATE
     Indication: Product used for unknown indication
     Route: 055
  101. BUDESONIDE\FORMOTEROL FUMARATE [Suspect]
     Active Substance: BUDESONIDE\FORMOTEROL FUMARATE
     Indication: Product used for unknown indication
     Route: 065
  102. BUDESONIDE\FORMOTEROL FUMARATE [Suspect]
     Active Substance: BUDESONIDE\FORMOTEROL FUMARATE
     Route: 065
  103. CIPROFLOXACIN HYDROCHLORIDE [Suspect]
     Active Substance: CIPROFLOXACIN HYDROCHLORIDE
     Indication: Product used for unknown indication
     Route: 065
  104. GLYCOPYRROLATE [Suspect]
     Active Substance: GLYCOPYRROLATE
     Indication: Product used for unknown indication
     Route: 065
  105. MEPOLIZUMAB [Suspect]
     Active Substance: MEPOLIZUMAB
     Indication: Product used for unknown indication
     Route: 065
  106. MEPOLIZUMAB [Suspect]
     Active Substance: MEPOLIZUMAB
     Route: 065
  107. MOXIFLOXACIN HYDROCHLORIDE [Suspect]
     Active Substance: MOXIFLOXACIN HYDROCHLORIDE
     Indication: Product used for unknown indication
     Route: 065
  108. MOXIFLOXACIN HYDROCHLORIDE [Suspect]
     Active Substance: MOXIFLOXACIN HYDROCHLORIDE
     Route: 065
  109. MOXIFLOXACIN HYDROCHLORIDE [Suspect]
     Active Substance: MOXIFLOXACIN HYDROCHLORIDE
     Route: 065
  110. NASONEX [Suspect]
     Active Substance: MOMETASONE FUROATE
     Indication: Product used for unknown indication
     Route: 065
  111. OLODATEROL HYDROCHLORIDE\TIOTROPIUM BROMIDE MONOHYDRATE [Suspect]
     Active Substance: OLODATEROL HYDROCHLORIDE\TIOTROPIUM BROMIDE MONOHYDRATE
     Indication: Product used for unknown indication
     Route: 065
  112. OMNARIS [Suspect]
     Active Substance: CICLESONIDE
     Indication: Product used for unknown indication
     Route: 065
  113. PREDNISONE [Suspect]
     Active Substance: PREDNISONE
     Indication: Product used for unknown indication
     Route: 065
  114. PREDNISONE [Suspect]
     Active Substance: PREDNISONE
     Route: 065
  115. SINGULAIR [Suspect]
     Active Substance: MONTELUKAST SODIUM
     Indication: Product used for unknown indication
     Route: 065
  116. SINGULAIR [Suspect]
     Active Substance: MONTELUKAST SODIUM
     Route: 065
  117. SPIRIVA [Suspect]
     Active Substance: TIOTROPIUM BROMIDE MONOHYDRATE
     Indication: Product used for unknown indication
     Route: 065
  118. SPIRIVA [Suspect]
     Active Substance: TIOTROPIUM BROMIDE MONOHYDRATE
     Route: 065
  119. GLYCOPYRRONIUM\INDACATEROL [Suspect]
     Active Substance: GLYCOPYRRONIUM\INDACATEROL
     Indication: Depression
     Route: 065
  120. GLYCOPYRRONIUM\INDACATEROL [Suspect]
     Active Substance: GLYCOPYRRONIUM\INDACATEROL
     Route: 048
  121. GLYCOPYRRONIUM\INDACATEROL [Suspect]
     Active Substance: GLYCOPYRRONIUM\INDACATEROL
     Route: 048
  122. UMECLIDINIUM BROMIDE [Suspect]
     Active Substance: UMECLIDINIUM BROMIDE
     Indication: Product used for unknown indication
     Route: 065
  123. ZENHALE [Suspect]
     Active Substance: FORMOTEROL FUMARATE\MOMETASONE FUROATE
     Indication: Product used for unknown indication
     Route: 065
  124. ANORO ELLIPTA [Suspect]
     Active Substance: UMECLIDINIUM BROMIDE\VILANTEROL TRIFENATATE
     Indication: Product used for unknown indication
     Route: 065
  125. ANORO ELLIPTA [Suspect]
     Active Substance: UMECLIDINIUM BROMIDE\VILANTEROL TRIFENATATE
     Route: 048
  126. ACLIDINIUM BROMIDE\FORMOTEROL FUMARATE [Suspect]
     Active Substance: ACLIDINIUM BROMIDE\FORMOTEROL FUMARATE
     Indication: Product used for unknown indication
     Route: 065
  127. EPIVAL [Suspect]
     Active Substance: DIVALPROEX SODIUM
     Indication: Product used for unknown indication
     Route: 065
  128. EPIVAL [Suspect]
     Active Substance: DIVALPROEX SODIUM
     Route: 048
  129. EPIVAL [Suspect]
     Active Substance: DIVALPROEX SODIUM
     Route: 048
  130. EPIVAL [Suspect]
     Active Substance: DIVALPROEX SODIUM
     Route: 048
  131. EPIVAL [Suspect]
     Active Substance: DIVALPROEX SODIUM
     Route: 048
  132. FORMOTEROL FUMARATE\MOMETASONE FUROATE [Suspect]
     Active Substance: FORMOTEROL FUMARATE\MOMETASONE FUROATE
     Indication: Product used for unknown indication
     Route: 065
  133. OLODATEROL HYDROCHLORIDE\TIOTROPIUM BROMIDE MONOHYDRATE [Suspect]
     Active Substance: OLODATEROL HYDROCHLORIDE\TIOTROPIUM BROMIDE MONOHYDRATE
     Indication: Product used for unknown indication
     Route: 065
  134. NUCALA [Suspect]
     Active Substance: MEPOLIZUMAB
     Indication: Product used for unknown indication
     Route: 065
  135. SEROQUEL [Suspect]
     Active Substance: QUETIAPINE FUMARATE
     Indication: Product used for unknown indication
     Route: 048
  136. SEROQUEL [Suspect]
     Active Substance: QUETIAPINE FUMARATE
     Route: 048
  137. DIAZEPAM [Suspect]
     Active Substance: DIAZEPAM
     Indication: Depression
     Route: 048
  138. DIAZEPAM [Suspect]
     Active Substance: DIAZEPAM
     Route: 048
  139. DIAZEPAM [Suspect]
     Active Substance: DIAZEPAM
     Route: 048
  140. DIAZEPAM [Suspect]
     Active Substance: DIAZEPAM
     Route: 048
  141. DIAZEPAM [Suspect]
     Active Substance: DIAZEPAM
     Route: 048
  142. DIAZEPAM [Suspect]
     Active Substance: DIAZEPAM
     Route: 048
  143. DIAZEPAM [Suspect]
     Active Substance: DIAZEPAM
     Route: 048
  144. DIAZEPAM [Suspect]
     Active Substance: DIAZEPAM
     Route: 048
  145. DIAZEPAM [Suspect]
     Active Substance: DIAZEPAM
     Route: 048
  146. DIAZEPAM [Suspect]
     Active Substance: DIAZEPAM
     Route: 048
  147. DIAZEPAM [Suspect]
     Active Substance: DIAZEPAM
     Route: 048
  148. DIAZEPAM [Suspect]
     Active Substance: DIAZEPAM
     Route: 048
  149. DIAZEPAM [Suspect]
     Active Substance: DIAZEPAM
     Route: 048
  150. DIAZEPAM [Suspect]
     Active Substance: DIAZEPAM
     Route: 065
  151. DIAZEPAM [Suspect]
     Active Substance: DIAZEPAM
     Route: 048
  152. TIOTROPIUM BROMIDE MONOHYDRATE [Suspect]
     Active Substance: TIOTROPIUM BROMIDE MONOHYDRATE
     Indication: Product used for unknown indication
     Route: 065
  153. TIOTROPIUM BROMIDE MONOHYDRATE [Suspect]
     Active Substance: TIOTROPIUM BROMIDE MONOHYDRATE
     Route: 065
  154. UMECLIDINIUM BROMIDE\VILANTEROL TRIFENATATE [Suspect]
     Active Substance: UMECLIDINIUM BROMIDE\VILANTEROL TRIFENATATE
     Indication: Product used for unknown indication
     Route: 065
  155. MOXIFLOXACIN\PREDNISOLONE ACETATE [Suspect]
     Active Substance: MOXIFLOXACIN\PREDNISOLONE ACETATE
     Indication: Product used for unknown indication
     Route: 065
  156. AZITHROMYCIN ANHYDROUS [Suspect]
     Active Substance: AZITHROMYCIN ANHYDROUS
     Indication: Product used for unknown indication
     Route: 065
  157. AZITHROMYCIN ANHYDROUS [Suspect]
     Active Substance: AZITHROMYCIN ANHYDROUS
     Route: 065
  158. ALBUTEROL [Suspect]
     Active Substance: ALBUTEROL
     Indication: Psychotic disorder
     Route: 065
  159. LAMIVUDINE [Concomitant]
     Active Substance: LAMIVUDINE
     Indication: Product used for unknown indication
     Route: 065
  160. ABACAVIR [Concomitant]
     Active Substance: ABACAVIR
     Indication: Product used for unknown indication
     Route: 065
  161. ABACAVIR [Concomitant]
     Active Substance: ABACAVIR
  162. ABACAVIR [Concomitant]
     Active Substance: ABACAVIR
  163. ATOVAQUONE\PROGUANIL [Concomitant]
     Active Substance: ATOVAQUONE\PROGUANIL
     Indication: Product used for unknown indication
  164. ATOVAQUONE\PROGUANIL [Concomitant]
     Active Substance: ATOVAQUONE\PROGUANIL
  165. ATOVAQUONE\PROGUANIL [Concomitant]
     Active Substance: ATOVAQUONE\PROGUANIL
  166. ATOVAQUONE\PROGUANIL [Concomitant]
     Active Substance: ATOVAQUONE\PROGUANIL
     Route: 065
  167. ATOVAQUONE\PROGUANIL [Concomitant]
     Active Substance: ATOVAQUONE\PROGUANIL
     Route: 048
  168. ATOVAQUONE\PROGUANIL [Concomitant]
     Active Substance: ATOVAQUONE\PROGUANIL
     Route: 048
  169. BISACODYL [Concomitant]
     Active Substance: BISACODYL
     Indication: Product used for unknown indication
     Route: 065
  170. BISACODYL [Concomitant]
     Active Substance: BISACODYL
     Route: 065
  171. CALCIUM CARBONATE [Concomitant]
     Active Substance: CALCIUM CARBONATE
     Indication: Product used for unknown indication
     Route: 065
  172. CALCIUM CARBONATE [Concomitant]
     Active Substance: CALCIUM CARBONATE
  173. CALCIUM CARBONATE [Concomitant]
     Active Substance: CALCIUM CARBONATE
  174. CHLORAL HYDRATE [Concomitant]
     Active Substance: CHLORAL HYDRATE
     Indication: Product used for unknown indication
     Route: 065
  175. CHLORAL HYDRATE [Concomitant]
     Active Substance: CHLORAL HYDRATE
  176. ENFUVIRTIDE [Concomitant]
     Active Substance: ENFUVIRTIDE
     Indication: Product used for unknown indication
     Route: 048
  177. ENFUVIRTIDE [Concomitant]
     Active Substance: ENFUVIRTIDE
     Route: 065
  178. ENFUVIRTIDE [Concomitant]
     Active Substance: ENFUVIRTIDE
     Route: 048
  179. IMODIUM [Concomitant]
     Active Substance: LOPERAMIDE HYDROCHLORIDE
     Indication: Product used for unknown indication
     Route: 065
  180. IMODIUM [Concomitant]
     Active Substance: LOPERAMIDE HYDROCHLORIDE
     Route: 065
  181. KALETRA [Concomitant]
     Active Substance: LOPINAVIR\RITONAVIR
     Indication: Product used for unknown indication
     Route: 065
  182. KALETRA [Concomitant]
     Active Substance: LOPINAVIR\RITONAVIR
     Route: 065
  183. LACTULOSE [Concomitant]
     Active Substance: LACTULOSE
     Indication: Product used for unknown indication
     Route: 048
  184. LACTULOSE [Concomitant]
     Active Substance: LACTULOSE
     Route: 065
  185. LACTULOSE [Concomitant]
     Active Substance: LACTULOSE
     Route: 065
  186. LACTULOSE [Concomitant]
     Active Substance: LACTULOSE
     Route: 065
  187. NYSTATIN [Concomitant]
     Active Substance: NYSTATIN
     Indication: Product used for unknown indication
     Route: 065
  188. NYSTATIN [Concomitant]
     Active Substance: NYSTATIN
     Route: 065
  189. SERTRALINE [Concomitant]
     Active Substance: SERTRALINE HYDROCHLORIDE
     Indication: Product used for unknown indication
     Route: 065
  190. SERTRALINE [Concomitant]
     Active Substance: SERTRALINE HYDROCHLORIDE
  191. LITHIUM [Concomitant]
     Active Substance: LITHIUM
     Indication: Product used for unknown indication
     Route: 065
  192. LITHIUM [Concomitant]
     Active Substance: LITHIUM
  193. LITHIUM [Concomitant]
     Active Substance: LITHIUM
  194. ENFUVIRTIDE [Concomitant]
     Active Substance: ENFUVIRTIDE
     Indication: Product used for unknown indication
     Route: 065
  195. ENFUVIRTIDE [Concomitant]
     Active Substance: ENFUVIRTIDE
     Route: 065
  196. BENADRYL [Concomitant]
     Active Substance: DIPHENHYDRAMINE HYDROCHLORIDE
     Indication: Product used for unknown indication
  197. ACETAMINOPHEN [Concomitant]
     Active Substance: ACETAMINOPHEN
     Indication: Pain in extremity
     Route: 048
  198. ACETAMINOPHEN [Concomitant]
     Active Substance: ACETAMINOPHEN
     Route: 065
  199. ACETAMINOPHEN [Concomitant]
     Active Substance: ACETAMINOPHEN
     Route: 065
  200. ACRIVASTINE [Concomitant]
     Active Substance: ACRIVASTINE
     Indication: Product used for unknown indication
  201. ACETAMINOPHEN\DIPHENHYDRAMINE\PHENYLPROPANOLAMINE [Concomitant]
     Active Substance: ACETAMINOPHEN\DIPHENHYDRAMINE\PHENYLPROPANOLAMINE
     Indication: Product used for unknown indication
  202. ACETAMINOPHEN\DIPHENHYDRAMINE\PHENYLPROPANOLAMINE [Concomitant]
     Active Substance: ACETAMINOPHEN\DIPHENHYDRAMINE\PHENYLPROPANOLAMINE
  203. NYSTATIN\ZINC OXIDE [Concomitant]
     Active Substance: NYSTATIN\ZINC OXIDE
     Indication: Product used for unknown indication
  204. LYCOPENE [Concomitant]
     Active Substance: LYCOPENE
     Indication: Product used for unknown indication
     Route: 065
  205. LAMIVUDINE [Concomitant]
     Active Substance: LAMIVUDINE
     Indication: Product used for unknown indication
     Route: 065
  206. ABACAVIR SULFATE [Concomitant]
     Active Substance: ABACAVIR SULFATE
     Indication: Product used for unknown indication
  207. FUZEON [Concomitant]
     Active Substance: ENFUVIRTIDE
     Indication: Product used for unknown indication
  208. MEGA VIM [Concomitant]
     Indication: Product used for unknown indication

REACTIONS (27)
  - Cholelithiasis [Unknown]
  - Condition aggravated [Recovered/Resolved]
  - Hepatic enzyme increased [Recovered/Resolved]
  - Hepatotoxicity [Recovered/Resolved]
  - Hypomania [Unknown]
  - Psychotic disorder [Recovered/Resolved]
  - Schizophrenia [Unknown]
  - Jaundice cholestatic [Recovered/Resolved]
  - Asthma-chronic obstructive pulmonary disease overlap syndrome [Recovered/Resolved]
  - Bronchiectasis [Recovered/Resolved]
  - Cardiac murmur [Recovered/Resolved]
  - Chronic obstructive pulmonary disease [Recovered/Resolved]
  - Gastrooesophageal reflux disease [Recovered/Resolved]
  - Lung neoplasm malignant [Recovered/Resolved]
  - Nasal polyps [Recovered/Resolved]
  - Blood bilirubin increased [Recovered/Resolved]
  - Sarcoidosis [Recovered/Resolved]
  - Total lung capacity increased [Recovered/Resolved]
  - Wheezing [Recovered/Resolved]
  - Rhinitis allergic [Recovered/Resolved]
  - Pain in extremity [Unknown]
  - Vomiting [Unknown]
  - Nausea [Unknown]
  - Oedema peripheral [Recovered/Resolved]
  - Pneumonia [Unknown]
  - Off label use [Recovered/Resolved]
  - Product use in unapproved indication [Recovered/Resolved]
